FAERS Safety Report 16646723 (Version 1)
Quarter: 2019Q3

REPORT INFORMATION
  Report Type: Spontaneous
  Country: US (occurrence: US)
  Receive Date: 20190730
  Receipt Date: 20190730
  Transmission Date: 20191004
  Serious: Yes (Other)
  Sender: FDA-Public Use
  Company Number: US-GLASSHOUSE PHARMACEUTICALS LIMITED CA-2019GLH00005

PATIENT
  Age: 40 Year
  Sex: Female

DRUGS (1)
  1. FLUOCINONIDE. [Suspect]
     Active Substance: FLUOCINONIDE
     Indication: MUCOSAL INFLAMMATION
     Dosage: 0.05%, 2X/DAY
     Route: 061

REACTIONS (2)
  - Serous retinal detachment [Recovering/Resolving]
  - Chorioretinopathy [Recovering/Resolving]
